FAERS Safety Report 9667908 (Version 2)
Quarter: 2013Q4

REPORT INFORMATION
  Report Type: Spontaneous
  Country: EE (occurrence: EE)
  Receive Date: 20131104
  Receipt Date: 20131104
  Transmission Date: 20140711
  Serious: Yes (Hospitalization, Other)
  Sender: FDA-Public Use
  Company Number: EE-ABBVIE-13P-221-1142519-00

PATIENT
  Age: 33 Year
  Sex: Female

DRUGS (6)
  1. HUMIRA [Suspect]
     Indication: SPONDYLITIS
     Route: 050
     Dates: start: 20120329, end: 20130719
  2. METHOTREXAT [Concomitant]
     Indication: SPONDYLITIS
     Dates: start: 201212
  3. METHOTREXAT [Concomitant]
     Dates: start: 20110316, end: 201203
  4. IBUPROFEN [Concomitant]
     Indication: PAIN
     Dates: start: 201308
  5. IBUPROFEN [Concomitant]
     Indication: MUSCULOSKELETAL STIFFNESS
  6. OMEPRAZOLE [Concomitant]
     Indication: PRODUCT USED FOR UNKNOWN INDICATION

REACTIONS (5)
  - Groin pain [Recovered/Resolved]
  - Lung infiltration [Recovered/Resolved]
  - Pyrexia [Recovered/Resolved]
  - Vomiting [Recovered/Resolved]
  - Sepsis [Unknown]
